FAERS Safety Report 21946906 (Version 1)
Quarter: 2023Q1

REPORT INFORMATION
  Report Type: Spontaneous
  Country: KR (occurrence: KR)
  Receive Date: 20230202
  Receipt Date: 20230202
  Transmission Date: 20230417
  Serious: Yes (Other)
  Sender: FDA-Public Use
  Company Number: KR-PFIZER INC-PV202300019264

PATIENT
  Age: 7 Decade
  Sex: Female

DRUGS (1)
  1. LORLATINIB [Suspect]
     Active Substance: LORLATINIB
     Indication: Lung neoplasm malignant
     Dosage: 100 MG
     Route: 048

REACTIONS (5)
  - Blindness [Unknown]
  - Oedema [Unknown]
  - Hyperlipidaemia [Unknown]
  - Depression [Unknown]
  - Visual impairment [Unknown]
